FAERS Safety Report 21531575 (Version 1)
Quarter: 2022Q4

REPORT INFORMATION
  Report Type: Spontaneous
  Country: US (occurrence: None)
  Receive Date: 20221028
  Receipt Date: 20221028
  Transmission Date: 20230112
  Serious: No
  Sender: FDA-Public Use
  Company Number: None

PATIENT
  Age: 75 Year
  Sex: Male
  Weight: 79.83 kg

DRUGS (1)
  1. TAMSULOSIN [Suspect]
     Active Substance: TAMSULOSIN
     Indication: Dysuria
     Dosage: 0.4 MG AT BEDTIME PO ?
     Route: 048
     Dates: start: 20220124, end: 20220425

REACTIONS (2)
  - Dizziness [None]
  - Swelling face [None]

NARRATIVE: CASE EVENT DATE: 20220425
